FAERS Safety Report 10706954 (Version 1)
Quarter: 2015Q1

REPORT INFORMATION
  Report Type: Spontaneous
  Country: US (occurrence: None)
  Receive Date: 20150110
  Receipt Date: 20150110
  Transmission Date: 20150721
  Serious: No
  Sender: FDA-Public Use
  Company Number: None

PATIENT
  Age: 66 Year
  Sex: Female

DRUGS (5)
  1. DAUNORUBICIN [Suspect]
     Active Substance: DAUNORUBICIN
  2. MTX [Suspect]
     Active Substance: METHOTREXATE SODIUM
  3. DEXAMETHASONE. [Suspect]
     Active Substance: DEXAMETHASONE
  4. VINCRISTINE [Suspect]
     Active Substance: VINCRISTINE
  5. CYTARABINE. [Suspect]
     Active Substance: CYTARABINE

REACTIONS (11)
  - Deep vein thrombosis [None]
  - Constipation [None]
  - Medical device complication [None]
  - Palpitations [None]
  - Loss of consciousness [None]
  - Abdominal pain upper [None]
  - Unresponsive to stimuli [None]
  - Fatigue [None]
  - Hyperhidrosis [None]
  - Laboratory test abnormal [None]
  - Anxiety [None]
